FAERS Safety Report 10331691 (Version 1)
Quarter: 2014Q3

REPORT INFORMATION
  Report Type: Other
  Country: ES (occurrence: ES)
  Receive Date: 20140722
  Receipt Date: 20140722
  Transmission Date: 20150326
  Serious: Yes (Life-Threatening, Hospitalization, Disabling)
  Sender: FDA-Public Use
  Company Number: ES-ASTELLAS-2014EU010028

PATIENT
  Age: 79 Year
  Sex: Female

DRUGS (1)
  1. BETMIGA [Suspect]
     Active Substance: MIRABEGRON
     Indication: URINARY INCONTINENCE
     Route: 048
     Dates: start: 20140521, end: 20140529

REACTIONS (3)
  - Atrial fibrillation [Not Recovered/Not Resolved]
  - Cerebral infarction [Recovered/Resolved]
  - Atrial flutter [Not Recovered/Not Resolved]

NARRATIVE: CASE EVENT DATE: 20140529
